FAERS Safety Report 22867387 (Version 3)
Quarter: 2023Q4

REPORT INFORMATION
  Report Type: Report from Study
  Country: IL (occurrence: IL)
  Receive Date: 20230825
  Receipt Date: 20231011
  Transmission Date: 20240110
  Serious: Yes (Hospitalization, Other)
  Sender: FDA-Public Use
  Company Number: IL-BAXTER-2023BAX029158

PATIENT
  Age: 68 Year
  Sex: Female
  Weight: 65 kg

DRUGS (18)
  1. CYCLOPHOSPHAMIDE [Suspect]
     Active Substance: CYCLOPHOSPHAMIDE
     Indication: Non-Hodgkin^s lymphoma
     Dosage: 1238 MG, EVERY 3 WEEKS
     Route: 042
     Dates: start: 20230625, end: 20230806
  2. DOXORUBICIN [Suspect]
     Active Substance: DOXORUBICIN
     Indication: Non-Hodgkin^s lymphoma
     Dosage: 83 MG, EVERY 3 WEEKS
     Route: 042
     Dates: start: 20230625, end: 20230806
  3. EPCORITAMAB [Suspect]
     Active Substance: EPCORITAMAB
     Indication: Non-Hodgkin^s lymphoma
     Dosage: 0.16 MG, PRIMING DOSE, EVERY 1 WEEKS
     Route: 058
     Dates: start: 20230625, end: 20230730
  4. EPCORITAMAB [Suspect]
     Active Substance: EPCORITAMAB
     Dosage: 0.8 MG, INTERMEDIATE DOSE
     Route: 058
     Dates: start: 20230806, end: 20230806
  5. EPCORITAMAB [Suspect]
     Active Substance: EPCORITAMAB
     Dosage: 48 MG, FULL DOSE, EVERY 1 WEEKS
     Route: 058
     Dates: start: 20230820
  6. RITUXIMAB [Suspect]
     Active Substance: RITUXIMAB
     Indication: Non-Hodgkin^s lymphoma
     Dosage: 620 MG, EVERY 3 WEEKS
     Route: 042
     Dates: start: 20230625, end: 20230806
  7. PREDNISONE [Suspect]
     Active Substance: PREDNISONE
     Indication: Non-Hodgkin^s lymphoma
     Dosage: 100 MG D1-5, C1-6, EVERY 1 DAYS, ONGOING
     Route: 048
     Dates: start: 20230625
  8. POLATUZUMAB VEDOTIN [Suspect]
     Active Substance: POLATUZUMAB VEDOTIN
     Indication: Non-Hodgkin^s lymphoma
     Dosage: 117 MG, EVERY 3 WEEKS
     Route: 042
     Dates: start: 20230625, end: 20230806
  9. CALCIUM [Concomitant]
     Active Substance: CALCIUM
     Indication: Osteoporosis
     Dosage: 600 MG, AS NECESSARY, START DATE: JAN-2023
     Route: 065
  10. Duplex [Concomitant]
     Indication: Hypertension
     Dosage: 80/5 MG, EVERY 1 DAYS
     Route: 065
     Dates: start: 20230626
  11. METFORMIN HYDROCHLORIDE [Concomitant]
     Active Substance: METFORMIN HYDROCHLORIDE
     Indication: Diabetes mellitus
     Dosage: 850 MG, EVERY 1 DAYS, START DATE: 2008
     Route: 065
  12. EMPA [Concomitant]
     Indication: Diabetes mellitus
     Dosage: 10 MG, EVERY 1 DAYS, START DATE: 2008
     Route: 065
  13. LEVOTHYROXINE [Concomitant]
     Active Substance: LEVOTHYROXINE
     Indication: Hypothyroidism
     Dosage: 150 UG, 4/WEEKS, START DATE: 2008
     Route: 065
  14. LEVOTHYROXINE [Concomitant]
     Active Substance: LEVOTHYROXINE
     Dosage: 100 MG, 3/WEEKS, START DATE: 2008
     Route: 065
  15. ALLOPURINOL [Concomitant]
     Active Substance: ALLOPURINOL
     Indication: Tumour lysis syndrome
     Dosage: 300 MG, EVERY 1 DAYS
     Route: 065
     Dates: start: 20230625
  16. POTASSIUM CHLORIDE [Concomitant]
     Active Substance: POTASSIUM CHLORIDE
     Indication: Hypokalaemia
     Dosage: 600 MG, 2/DAYS
     Route: 065
     Dates: start: 20230731
  17. LOPERAMIDE [Concomitant]
     Active Substance: LOPERAMIDE
     Indication: Diarrhoea
     Dosage: 4 MG, AS NECESSARY
     Route: 065
     Dates: start: 20230801
  18. MAGNOX [Concomitant]
     Indication: Hypomagnesaemia
     Dosage: 520 MG, 2/DAYS
     Route: 065
     Dates: start: 20230731

REACTIONS (1)
  - Febrile neutropenia [Recovered/Resolved]

NARRATIVE: CASE EVENT DATE: 20230813
